FAERS Safety Report 9728055 (Version 1)
Quarter: 2013Q4

REPORT INFORMATION
  Report Type: Spontaneous
  Country: US (occurrence: None)
  Receive Date: 20131203
  Receipt Date: 20131203
  Transmission Date: 20140711
  Serious: No
  Sender: FDA-Public Use
  Company Number: None

PATIENT
  Age: 65 Year
  Sex: Female
  Weight: 135 kg

DRUGS (3)
  1. TIZANIDINE HCL [Suspect]
     Indication: HEADACHE
     Route: 048
     Dates: start: 20131101, end: 20131119
  2. TIZANIDINE HCL [Suspect]
     Indication: MUSCLE SPASMS
     Route: 048
     Dates: start: 20131101, end: 20131119
  3. MIGRAVENT [Suspect]
     Route: 048
     Dates: start: 20131016, end: 20131130

REACTIONS (10)
  - Influenza [None]
  - Blood pressure decreased [None]
  - Myalgia [None]
  - Blood pressure increased [None]
  - Spinal pain [None]
  - Eye pain [None]
  - Toothache [None]
  - Headache [None]
  - Sinus headache [None]
  - Drug ineffective [None]
